FAERS Safety Report 10912266 (Version 1)
Quarter: 2015Q1

REPORT INFORMATION
  Report Type: Spontaneous
  Country: LK (occurrence: None)
  Receive Date: 20150310
  Receipt Date: 20150310
  Transmission Date: 20150721
  Serious: Yes (Death, Hospitalization, Other)
  Sender: FDA-Public Use
  Company Number: UK-ZYDUS-006812

PATIENT
  Age: 35 Year
  Sex: Female

DRUGS (2)
  1. AZATHIOPRINE (AZATHIOPRINE) [Suspect]
     Active Substance: AZATHIOPRINE
  2. PREDNISOLONE (PREDNISOLONE) [Suspect]
     Active Substance: PREDNISOLONE

REACTIONS (6)
  - Aspartate aminotransferase increased [None]
  - Anaemia [None]
  - International normalised ratio abnormal [None]
  - Septic shock [None]
  - Metabolic acidosis [None]
  - Necrotising fasciitis [None]
